FAERS Safety Report 7644226-2 (Version None)
Quarter: 2011Q3

REPORT INFORMATION
  Report Type: 
  Country: None (occurrence: None)
  Receive Date: 20110728
  Receipt Date: 20110728
  Transmission Date: 20111222
  Serious: Yes (Hospitalization)
  Sender: FDA-Public Use
  Company Number: None

PATIENT
  Sex: Female

DRUGS (1)
  1. HYDRALAZINE HCL [Suspect]
     Dosage: 25MG #90 1 TID ORAL
     Route: 048
     Dates: start: 20110624, end: 20110727

REACTIONS (2)
  - DYSPNOEA [None]
  - RASH [None]
